FAERS Safety Report 25899491 (Version 1)
Quarter: 2025Q4

REPORT INFORMATION
  Report Type: Spontaneous
  Country: US (occurrence: US)
  Receive Date: 20251009
  Receipt Date: 20251009
  Transmission Date: 20260117
  Serious: No
  Sender: ROCHE
  Company Number: US-ROCHE-10000400345

PATIENT
  Age: 50 Year
  Sex: Male
  Weight: 103.42 kg

DRUGS (5)
  1. XOLAIR [Suspect]
     Active Substance: OMALIZUMAB
     Indication: Chronic spontaneous urticaria
     Route: 058
     Dates: start: 20221209
  2. GABAPENTIN [Concomitant]
     Active Substance: GABAPENTIN
     Indication: Spondylitis
     Route: 048
  3. ZOLPIDEM [Concomitant]
     Active Substance: ZOLPIDEM TARTRATE
     Dosage: AT BEDTIME, AS NEEDED
     Route: 048
     Dates: start: 20241118
  4. HYDROXYZINE [Concomitant]
     Active Substance: HYDROXYZINE HYDROCHLORIDE
  5. PREDNISONE [Concomitant]
     Active Substance: PREDNISONE
     Indication: Urticaria
     Dosage: AS NEEDED
     Route: 048
     Dates: start: 20220607

REACTIONS (3)
  - Product dose omission issue [Unknown]
  - Urticaria [Unknown]
  - Device leakage [Unknown]

NARRATIVE: CASE EVENT DATE: 20250926
